FAERS Safety Report 7733102-2 (Version None)
Quarter: 2011Q3

REPORT INFORMATION
  Report Type: 
  Country: None (occurrence: None)
  Receive Date: 20110907
  Receipt Date: 20110831
  Transmission Date: 20111222
  Serious: Yes (Hospitalization)
  Sender: FDA-Public Use
  Company Number: US-MERCK-1109USA00032

PATIENT
  Age: 83 Year
  Sex: Female

DRUGS (3)
  1. LOVASTATIN [Concomitant]
     Route: 065
  2. GLYBURIDE [Concomitant]
     Route: 065
  3. JANUVIA [Suspect]
     Indication: DIABETES MELLITUS
     Route: 048
     Dates: start: 20100101

REACTIONS (2)
  - HIP FRACTURE [None]
  - FALL [None]
